FAERS Safety Report 6640809-7 (Version None)
Quarter: 2010Q1

REPORT INFORMATION
  Report Type: 
  Country: None (occurrence: None)
  Receive Date: 20100318
  Receipt Date: 20100311
  Transmission Date: 20100710
  Serious: Yes (Life-Threatening, Hospitalization)
  Sender: FDA-Public Use
  Company Number: US-ELI_LILLY_AND_COMPANY-US200903002753

PATIENT
  Sex: Male

DRUGS (9)
  1. BYETTA [Suspect]
     Dosage: UNK, UNKNOWN
     Route: 065
     Dates: start: 20021001
  2. METFORMIN HYDROCHLORIDE [Concomitant]
     Dosage: 500 MG, 2/D
     Route: 048
  3. GLIPIZIDE [Concomitant]
     Dosage: 5 MG, DAILY (1/D)
     Route: 048
  4. LISINOPRIL [Concomitant]
     Dosage: 10 MG, DAILY (1/D)
     Route: 048
  5. EFFEXOR [Concomitant]
     Dosage: 75 MG, DAILY (1/D)
     Route: 048
  6. ALLOPURINOL [Concomitant]
     Dosage: 300 MG, DAILY (1/D)
     Route: 048
  7. LIPITOR [Concomitant]
     Dosage: 20 MG, EACH EVENING
     Route: 048
  8. POTASSIUM CHLORIDE [Concomitant]
     Dosage: 10 MEQ, 2/D
     Route: 048
  9. ASPIRIN [Concomitant]
     Dosage: 81 MG, DAILY (1/D)
     Route: 048

REACTIONS (8)
  - COUGH [None]
  - DYSPHAGIA [None]
  - MULTI-ORGAN FAILURE [None]
  - PANCREATITIS [None]
  - PLEURAL EFFUSION [None]
  - RENAL FAILURE ACUTE [None]
  - RESPIRATORY FAILURE [None]
  - SEPSIS [None]
